FAERS Safety Report 8907307 (Version 3)
Quarter: 2012Q4

REPORT INFORMATION
  Report Type: 
  Country: US (occurrence: US)
  Receive Date: 20121114
  Receipt Date: 20121210
  Transmission Date: 20130627
  Serious: Yes (Hospitalization)
  Sender: FDA-Public Use
  Company Number: US-SANOFI-AVENTIS-2012SA081616

PATIENT
  Age: 58 Year
  Sex: Male
  Weight: 81 kg

DRUGS (2)
  1. ALLEGRA D [Suspect]
     Indication: ALLERGY
     Route: 048
     Dates: end: 2012
  2. ALLEGRA D [Suspect]
     Indication: ALLERGY
     Route: 048
     Dates: end: 2012

REACTIONS (2)
  - Intestinal obstruction [Recovered/Resolved]
  - Medication residue [Unknown]
